FAERS Safety Report 22517919 (Version 1)
Quarter: 2023Q2

REPORT INFORMATION
  Report Type: Spontaneous
  Country: CN (occurrence: CN)
  Receive Date: 20230605
  Receipt Date: 20230605
  Transmission Date: 20230721
  Serious: Yes (Hospitalization)
  Sender: FDA-Public Use
  Company Number: CN-BoehringerIngelheim-2023-BI-240492

PATIENT
  Age: 42 Year
  Sex: Male
  Weight: 62.0 kg

DRUGS (5)
  1. LINAGLIPTIN [Suspect]
     Active Substance: LINAGLIPTIN
     Indication: Blood glucose increased
     Route: 048
     Dates: start: 20230426, end: 20230430
  2. REPAGLINIDE [Concomitant]
     Active Substance: REPAGLINIDE
     Indication: Blood glucose increased
     Route: 048
     Dates: start: 20230427, end: 20230428
  3. Metformin Hydrochloride Sustained-releasc Tablets [Concomitant]
     Indication: Blood glucose increased
     Route: 048
     Dates: start: 20230426, end: 20230430
  4. Dapagliflizin Tablets [Concomitant]
     Indication: Blood glucose increased
     Route: 048
     Dates: start: 20230426, end: 20230430
  5. ACARBOSE [Concomitant]
     Active Substance: ACARBOSE
     Indication: Blood glucose increased
     Route: 048
     Dates: start: 20230426, end: 20230430

REACTIONS (3)
  - Rash [Recovering/Resolving]
  - Pruritus [Recovering/Resolving]
  - Product use issue [Recovering/Resolving]

NARRATIVE: CASE EVENT DATE: 20230428
